FAERS Safety Report 4602991-2 (Version None)
Quarter: 2005Q1

REPORT INFORMATION
  Report Type: 
  Country: None (occurrence: None)
  Receive Date: 20050307
  Receipt Date: 20050218
  Transmission Date: 20050727
  Serious: Yes (Hospitalization)
  Sender: FDA-Public Use
  Company Number: 2005033859

PATIENT
  Age: 48 Year
  Sex: Female

DRUGS (2)
  1. CELEBREX [Suspect]
     Indication: ILL-DEFINED DISORDER
     Dosage: ORAL
     Route: 048
     Dates: start: 20050212
  2. TAMOXIFEN (TAMOXIFEN) [Concomitant]

REACTIONS (2)
  - CAROTID ARTERY THROMBOSIS [None]
  - HEMIPLEGIA [None]
